FAERS Safety Report 6318048-9 (Version None)
Quarter: 2009Q3

REPORT INFORMATION
  Report Type: 
  Country: None (occurrence: None)
  Receive Date: 20090821
  Receipt Date: 20090812
  Transmission Date: 20100115
  Serious: Yes (Other)
  Sender: FDA-Public Use
  Company Number: US-JNJCH-2009022008

PATIENT
  Age: 85 Year
  Sex: Female
  Weight: 59 kg

DRUGS (2)
  1. ROGAINE [Suspect]
     Indication: ALOPECIA
     Dosage: TEXT:^TO FILL LINE OF DROPPER^ 2X A DAY
     Route: 061
  2. PLAVIX [Concomitant]
     Indication: VEIN DISORDER
     Dosage: TEXT:10MG 1 X A DAY
     Route: 065

REACTIONS (1)
  - VASCULAR GRAFT [None]
